FAERS Safety Report 8604534-5 (Version None)
Quarter: 2012Q3

REPORT INFORMATION
  Report Type: 
  Country: None (occurrence: None)
  Receive Date: 20120820
  Receipt Date: 20120810
  Transmission Date: 20120928
  Serious: Yes (Other)
  Sender: FDA-Public Use
  Company Number: CA-JNJFOC-20120804946

PATIENT
  Sex: Female
  Weight: 80 kg

DRUGS (2)
  1. REMICADE [Suspect]
     Indication: CROHN'S DISEASE
     Route: 042
     Dates: start: 20090504
  2. SYNTHROID [Concomitant]
     Route: 065

REACTIONS (4)
  - ULNA FRACTURE [None]
  - LOSS OF CONSCIOUSNESS [None]
  - FALL [None]
  - CONCUSSION [None]
